FAERS Safety Report 22396819 (Version 3)
Quarter: 2023Q4

REPORT INFORMATION
  Report Type: Report from Study
  Country: US (occurrence: US)
  Receive Date: 20230601
  Receipt Date: 20231027
  Transmission Date: 20240110
  Serious: Yes (Other)
  Sender: FDA-Public Use
  Company Number: US-ACADIA PHARMACEUTICALS INC.-ACA-2023-PIM-002036

PATIENT
  Sex: Female

DRUGS (23)
  1. NUPLAZID [Suspect]
     Active Substance: PIMAVANSERIN TARTRATE
     Indication: Parkinson^s disease psychosis
     Dosage: 34 MILLIGRAM, QD
     Route: 048
  2. NUPLAZID [Suspect]
     Active Substance: PIMAVANSERIN TARTRATE
     Indication: Parkinson^s disease
  3. CYANOCOBALAMIN [Concomitant]
     Active Substance: CYANOCOBALAMIN
  4. LEVEMIR [Concomitant]
     Active Substance: INSULIN DETEMIR
  5. NOVOLOG [Concomitant]
     Active Substance: INSULIN ASPART
  6. VITAMINS [Concomitant]
     Active Substance: VITAMINS
  7. MELATONIN [Concomitant]
     Active Substance: MELATONIN
  8. GLUCOSAMINE [Concomitant]
     Active Substance: GLUCOSAMINE
  9. TOLTERODINE [Concomitant]
     Active Substance: TOLTERODINE
  10. CARBIDOPA [Concomitant]
     Active Substance: CARBIDOPA
  11. CLOPIDOGREL [Concomitant]
     Active Substance: CLOPIDOGREL BISULFATE
  12. LOSARTAN [Concomitant]
     Active Substance: LOSARTAN
  13. MIRALAX [Concomitant]
     Active Substance: POLYETHYLENE GLYCOL 3350
  14. LEVOTHYROXINE [Concomitant]
     Active Substance: LEVOTHYROXINE
  15. FISH OIL [Concomitant]
     Active Substance: FISH OIL
  16. DICLOFENAC [Concomitant]
     Active Substance: DICLOFENAC
  17. FLUTICASONE [Concomitant]
     Active Substance: FLUTICASONE
  18. FLUOCINONIDE [Concomitant]
     Active Substance: FLUOCINONIDE
  19. NYSTATIN [Concomitant]
     Active Substance: NYSTATIN
  20. ANASTROZOLE [Concomitant]
     Active Substance: ANASTROZOLE
  21. SIMVASTATIN [Concomitant]
     Active Substance: SIMVASTATIN
  22. FAMOTIDINE [Concomitant]
     Active Substance: FAMOTIDINE
  23. ONDANSETRON [Concomitant]
     Active Substance: ONDANSETRON

REACTIONS (2)
  - Lung neoplasm malignant [Unknown]
  - Feeling abnormal [Unknown]
